FAERS Safety Report 11314481 (Version 1)
Quarter: 2015Q3

REPORT INFORMATION
  Report Type: Report from Study
  Country: CA (occurrence: CA)
  Receive Date: 20150727
  Receipt Date: 20150727
  Transmission Date: 20151125
  Serious: Yes (Other)
  Sender: FDA-Public Use
  Company Number: CA-BAYER-2015-377621

PATIENT
  Age: 24 Year
  Sex: Female

DRUGS (1)
  1. MIRENA [Suspect]
     Active Substance: LEVONORGESTREL
     Dosage: 20 MCG/24HR, CONT
     Route: 015
     Dates: start: 20150114, end: 20150210

REACTIONS (6)
  - Uterine contractions abnormal [None]
  - Device expulsion [None]
  - Endometriosis [None]
  - Post procedural complication [None]
  - Genital haemorrhage [None]
  - Retained placenta or membranes [None]

NARRATIVE: CASE EVENT DATE: 20150210
